FAERS Safety Report 9506606 (Version 1)
Quarter: 2013Q3

REPORT INFORMATION
  Report Type: Spontaneous
  Country: US (occurrence: US)
  Receive Date: 20130907
  Receipt Date: 20130907
  Transmission Date: 20140515
  Serious: No
  Sender: FDA-Public Use
  Company Number: US-B.I. PHARMACEUTICALS,INC./RIDGEFIELD-2013-BI-26741BP

PATIENT
  Age: 53 Year
  Sex: Female
  Weight: 73 kg

DRUGS (15)
  1. SPIRIVA [Suspect]
     Indication: CHRONIC OBSTRUCTIVE PULMONARY DISEASE
     Dosage: 18 MCG
     Route: 055
     Dates: start: 20130603
  2. ALBUTEROL [Concomitant]
     Indication: CHRONIC OBSTRUCTIVE PULMONARY DISEASE
     Route: 055
  3. METHOTREXATE [Concomitant]
     Indication: RHEUMATOID ARTHRITIS
     Route: 048
  4. GABAPENTIN [Concomitant]
     Indication: ARTHRALGIA
     Dosage: 400 MG
     Route: 048
  5. GABAPENTIN [Concomitant]
     Dosage: 300 MG
     Route: 048
  6. TRAZODONE [Concomitant]
     Indication: DEPRESSION
     Dosage: 150 MG
     Route: 048
  7. PREDNISOLONE EYE DROPS [Concomitant]
  8. HYDROCHLOROTHIAZIDE [Concomitant]
     Indication: FLUID RETENTION
     Dosage: 2.5 MG
     Route: 048
  9. MELOXICAM [Concomitant]
     Indication: ARTHRALGIA
     Dosage: 7.5 MG
     Route: 048
  10. FOLIC ACID [Concomitant]
     Dosage: 1.2 MG
     Route: 048
  11. LISINOPRIL [Concomitant]
     Indication: HYPERTENSION
     Dosage: 5 MG
     Route: 048
  12. B12 SHOTS [Concomitant]
     Indication: VITAMIN B12 DEFICIENCY
     Dosage: FORMULATION: INTRAMUSCULAR
     Route: 030
  13. XANAX [Concomitant]
     Indication: ANXIETY
     Dosage: 0.5 MG
     Route: 048
  14. EFFEXOR ER [Concomitant]
     Indication: DEPRESSION
     Route: 048
  15. NORCO [Concomitant]
     Indication: ARTHRALGIA
     Dosage: DOSE STRENGTH: 10MG/325MG
     Route: 048

REACTIONS (3)
  - Wheezing [Not Recovered/Not Resolved]
  - Cough [Not Recovered/Not Resolved]
  - Product quality issue [Not Recovered/Not Resolved]
